FAERS Safety Report 18541974 (Version 5)
Quarter: 2021Q1

REPORT INFORMATION
  Report Type: Report from Study
  Country: US (occurrence: US)
  Receive Date: 20201124
  Receipt Date: 20210311
  Transmission Date: 20210419
  Serious: No
  Sender: FDA-Public Use
  Company Number: NVSC2020US307569

PATIENT
  Age: 63 Year
  Sex: Female

DRUGS (1)
  1. ENTRESTO [Suspect]
     Active Substance: SACUBITRIL\VALSARTAN
     Indication: PRODUCT USED FOR UNKNOWN INDICATION
     Dosage: UNK UNK, UNKNOWN
     Route: 065

REACTIONS (6)
  - Hypopnoea [Unknown]
  - Oxygen saturation abnormal [Unknown]
  - Nasal congestion [Unknown]
  - Throat clearing [Unknown]
  - Sleep apnoea syndrome [Unknown]
  - Left ventricular enlargement [Unknown]

NARRATIVE: CASE EVENT DATE: 202009
